FAERS Safety Report 18803096 (Version 2)
Quarter: 2025Q3

REPORT INFORMATION
  Report Type: Spontaneous
  Country: EU (occurrence: EU)
  Receive Date: 20210129
  Receipt Date: 20250701
  Transmission Date: 20251021
  Serious: Yes (Death, Life-Threatening, Other)
  Sender: AUROBINDO
  Company Number: EU-CHEPLA-C20210118

PATIENT
  Age: 28 Year
  Sex: Male

DRUGS (11)
  1. DIPHENHYDRAMINE [Suspect]
     Active Substance: DIPHENHYDRAMINE
     Indication: Product used for unknown indication
     Route: 065
  2. ATROPINE SULFATE [Concomitant]
     Active Substance: ATROPINE SULFATE
     Indication: Product used for unknown indication
     Route: 065
  3. DOPAMINE [Concomitant]
     Active Substance: DOPAMINE HYDROCHLORIDE
     Indication: Product used for unknown indication
     Route: 065
  4. ETHACRYNIC ACID [Concomitant]
     Active Substance: ETHACRYNIC ACID
     Indication: Product used for unknown indication
     Route: 065
  5. FUROSEMIDE [Concomitant]
     Active Substance: FUROSEMIDE
     Indication: Product used for unknown indication
     Route: 065
  6. LIDOCAINE HYDROCHLORIDE [Concomitant]
     Active Substance: LIDOCAINE HYDROCHLORIDE
     Indication: Product used for unknown indication
     Route: 042
  7. LIDOCAINE HYDROCHLORIDE [Concomitant]
     Active Substance: LIDOCAINE HYDROCHLORIDE
  8. Orciprenaline sulfate [Concomitant]
     Indication: Product used for unknown indication
     Route: 065
  9. PINDOLOL [Concomitant]
     Active Substance: PINDOLOL
     Indication: Product used for unknown indication
     Route: 065
  10. SODIUM BICARBONATE [Concomitant]
     Active Substance: SODIUM BICARBONATE
     Indication: Product used for unknown indication
     Route: 042
  11. SODIUM BICARBONATE [Concomitant]
     Active Substance: SODIUM BICARBONATE
     Route: 065

REACTIONS (12)
  - Cardiac arrest [Fatal]
  - Toxicity to various agents [Fatal]
  - Hallucination, visual [Unknown]
  - Pulmonary oedema [Unknown]
  - Acute kidney injury [Unknown]
  - Hyperpyrexia [Unknown]
  - Tachypnoea [Unknown]
  - Vomiting [Unknown]
  - Mydriasis [Unknown]
  - Hypotonia [Unknown]
  - Hyperacusis [Unknown]
  - Communication disorder [Unknown]
